FAERS Safety Report 6553642-1 (Version None)
Quarter: 2010Q1

REPORT INFORMATION
  Report Type: 
  Country: None (occurrence: None)
  Receive Date: 20100127
  Receipt Date: 20100122
  Transmission Date: 20100710
  Serious: Yes (Hospitalization)
  Sender: FDA-Public Use
  Company Number: US-TEVA-201693USA

PATIENT
  Sex: Male
  Weight: 81.675 kg

DRUGS (4)
  1. FLUOROURACIL [Suspect]
     Indication: COLON CANCER
     Dates: start: 20080827, end: 20090112
  2. CALCIUM FOLINATE 100 MG BASE/VIAL [Suspect]
     Indication: COLON CANCER
     Dates: start: 20080827, end: 20090112
  3. AG-013736 [Suspect]
  4. OXALIPLATIN [Suspect]
     Indication: COLON CANCER
     Dates: start: 20080827, end: 20090112

REACTIONS (1)
  - BACTERAEMIA [None]
